FAERS Safety Report 7225050-1 (Version None)
Quarter: 2011Q1

REPORT INFORMATION
  Report Type: 
  Country: None (occurrence: None)
  Receive Date: 20110107
  Receipt Date: 20110107
  Transmission Date: 20110831
  Serious: Yes (Hospitalization)
  Sender: FDA-Public Use
  Company Number: None

PATIENT
  Sex: Male
  Weight: 69.9 kg

DRUGS (21)
  1. DOCETAXEL [Suspect]
     Indication: LUNG NEOPLASM MALIGNANT
     Dosage: 75MG/M2 Q21 DAYS IV
     Route: 042
     Dates: start: 20100610, end: 20101108
  2. ZOLPIDEM [Concomitant]
  3. CETIRIZINE HCL [Concomitant]
  4. BISACODYL [Concomitant]
  5. BACLOFEN [Concomitant]
  6. CLINDAMYCIN [Concomitant]
  7. PEGFILGRASTIM [Concomitant]
  8. NA PHOSPHATES [Concomitant]
  9. APRICOXIB/PLACEBO 400MG TRAGARA PHARMACEUTICALS [Suspect]
     Indication: LUNG NEOPLASM MALIGNANT
     Dosage: 400MG ONCE DAILY PO
     Route: 048
     Dates: start: 20100601, end: 20101123
  10. ESOMEPRAZOLE [Concomitant]
  11. K PHOSPHATES [Concomitant]
  12. MULTI-VITAMIN [Concomitant]
  13. CA CARBONATE [Concomitant]
  14. BENZONATATE [Concomitant]
  15. GUAFENSIN-CODEINE [Concomitant]
  16. ALBUTEROL [Concomitant]
  17. SPACER/AERO-HOLDING CHAM [Concomitant]
  18. PROCHLORPERAZINE [Concomitant]
  19. ONDANSETRON [Concomitant]
  20. FEXOFENADINE HCL [Concomitant]
  21. B COMPLEX-BIOTIN-FA [Concomitant]

REACTIONS (7)
  - VENTRICULAR EXTRASYSTOLES [None]
  - PNEUMONIA [None]
  - DYSPNOEA [None]
  - HAEMOPTYSIS [None]
  - ANAEMIA [None]
  - PSEUDOMONAS INFECTION [None]
  - PYREXIA [None]
